FAERS Safety Report 8312645-7 (Version None)
Quarter: 2012Q2

REPORT INFORMATION
  Report Type: 
  Country: None (occurrence: None)
  Receive Date: 20120424
  Receipt Date: 20120413
  Transmission Date: 20120825
  Serious: Yes (Hospitalization)
  Sender: FDA-Public Use
  Company Number: 2012HGS-003512

PATIENT
  Age: 45 Year
  Sex: Female
  Weight: 119.7496 kg

DRUGS (6)
  1. BENLYSTA [Suspect]
  2. AZATHIOPRINE [Concomitant]
  3. PREDNISONE TAB [Concomitant]
  4. BENLYSTA [Suspect]
     Dosage: 1 IN 28 DA, INTRAVENOUS DRIP
     Route: 041
     Dates: start: 20110812
  5. HYDROXYCHLOROQUINE SULFATE [Concomitant]
  6. IBUPROFEN TABLETS [Concomitant]

REACTIONS (17)
  - FEELING ABNORMAL [None]
  - PANIC ATTACK [None]
  - MUSCULAR WEAKNESS [None]
  - VASCULITIS [None]
  - WEANING FAILURE [None]
  - DIPLOPIA [None]
  - SKIN ULCER [None]
  - ANXIETY [None]
  - DYSPNOEA EXERTIONAL [None]
  - UPPER MOTOR NEURONE LESION [None]
  - CONDITION AGGRAVATED [None]
  - DYSPNOEA [None]
  - AXONAL NEUROPATHY [None]
  - HAIR DISORDER [None]
  - PLEURISY [None]
  - MYASTHENIA GRAVIS [None]
  - SKIN DISORDER [None]
